FAERS Safety Report 17926524 (Version 2)
Quarter: 2021Q2

REPORT INFORMATION
  Report Type: Spontaneous
  Country: US (occurrence: US)
  Receive Date: 20200623
  Receipt Date: 20210629
  Transmission Date: 20210717
  Serious: No
  Sender: FDA-Public Use
  Company Number: US-TEVA-2020-US-1245623

PATIENT
  Sex: Female
  Weight: 68 kg

DRUGS (4)
  1. VITAMIN D3 [Concomitant]
     Active Substance: CHOLECALCIFEROL
  2. MELATONIN [Concomitant]
     Active Substance: MELATONIN
  3. ZYRTEC [Concomitant]
     Active Substance: CETIRIZINE HYDROCHLORIDE
  4. AUSTEDO [Suspect]
     Active Substance: DEUTETRABENAZINE
     Indication: TREMOR
     Dosage: 12 MILLIGRAM DAILY; EVERY MORNING
     Route: 048
     Dates: start: 20191007

REACTIONS (3)
  - Adverse drug reaction [Unknown]
  - Tremor [Unknown]
  - Product use in unapproved indication [None]
